FAERS Safety Report 5701028-1 (Version None)
Quarter: 2008Q2

REPORT INFORMATION
  Report Type: 
  Country: None (occurrence: None)
  Receive Date: 20080410
  Receipt Date: 20080331
  Transmission Date: 20081010
  Serious: Yes (Hospitalization)
  Sender: FDA-Public Use
  Company Number: FR-WYE-H03436108

PATIENT
  Sex: Female

DRUGS (6)
  1. EUPANTOL [Suspect]
     Route: 048
  2. ADANCOR [Concomitant]
     Dosage: 20 MG
     Route: 048
  3. DI-HYDAN [Concomitant]
     Indication: TRIGEMINAL NEURALGIA
     Dosage: 100 MG
     Route: 048
  4. TEGRETOL [Suspect]
     Indication: TRIGEMINAL NEURALGIA
     Route: 048
     Dates: end: 20080128
  5. TEGRETOL [Suspect]
     Route: 048
     Dates: start: 20080129, end: 20080210
  6. RIVOTRIL [Concomitant]
     Indication: TRIGEMINAL NEURALGIA
     Dosage: DF
     Route: 048

REACTIONS (1)
  - HYPONATRAEMIA [None]
